FAERS Safety Report 7654060-5 (Version None)
Quarter: 2011Q3

REPORT INFORMATION
  Report Type: 
  Country: None (occurrence: None)
  Receive Date: 20110803
  Receipt Date: 20110725
  Transmission Date: 20111222
  Serious: Yes (Other)
  Sender: FDA-Public Use
  Company Number: PHFR2011GB02655

PATIENT
  Sex: Female

DRUGS (1)
  1. CLOZAPINE [Suspect]
     Route: 048
     Dates: start: 20110330

REACTIONS (5)
  - BLOOD GLUCOSE INCREASED [None]
  - FATIGUE [None]
  - BACK PAIN [None]
  - LOWER RESPIRATORY TRACT INFECTION [None]
  - PYELONEPHRITIS [None]
